FAERS Safety Report 8567528-4 (Version None)
Quarter: 2012Q3

REPORT INFORMATION
  Report Type: 
  Country: None (occurrence: None)
  Receive Date: 20120803
  Receipt Date: 20120801
  Transmission Date: 20120928
  Serious: Yes (Death)
  Sender: FDA-Public Use
  Company Number: PHHY2012US066804

PATIENT
  Age: 89 Year
  Sex: Female

DRUGS (1)
  1. BUFFERIN [Suspect]
     Indication: HEADACHE
     Route: 048

REACTIONS (2)
  - INCORRECT DRUG ADMINISTRATION DURATION [None]
  - BREAST CANCER [None]
